FAERS Safety Report 7774840-5 (Version None)
Quarter: 2011Q3

REPORT INFORMATION
  Report Type: 
  Country: None (occurrence: None)
  Receive Date: 20110923
  Receipt Date: 20110914
  Transmission Date: 20111222
  Serious: Yes (Hospitalization)
  Sender: FDA-Public Use
  Company Number: US-JNJFOC-20110906291

PATIENT
  Age: 34 Year
  Sex: Female

DRUGS (5)
  1. INVEGA [Suspect]
     Route: 048
     Dates: start: 20110601
  2. INVEGA [Suspect]
     Route: 048
     Dates: start: 20110501
  3. INVEGA [Suspect]
     Route: 048
     Dates: start: 20110801
  4. FLOMAX [Concomitant]
     Route: 048
  5. INVEGA [Suspect]
     Indication: PRODUCT USED FOR UNKNOWN INDICATION
     Route: 048
     Dates: start: 20110315

REACTIONS (2)
  - BLOOD GLUCOSE INCREASED [None]
  - WRONG TECHNIQUE IN DRUG USAGE PROCESS [None]
